FAERS Safety Report 5020830-5 (Version None)
Quarter: 2006Q2

REPORT INFORMATION
  Report Type: 
  Country: None (occurrence: None)
  Receive Date: 20060606
  Receipt Date: 20060606
  Transmission Date: 20061013
  Serious: Yes (Hospitalization)
  Sender: FDA-Public Use
  Company Number: None

PATIENT
  Sex: Male

DRUGS (2)
  1. CETUXIMAB 400 MG /M2 [Suspect]
     Indication: OESOPHAGEAL CARCINOMA
     Dosage: ORDERED 400 MG/M2 X 21 IV
     Route: 042
     Dates: start: 20060531
  2. PACLITAXEL [Suspect]
     Indication: OESOPHAGEAL CARCINOMA
     Dosage: ORDERED 50 MG/M2 X 1 IV -ONLY-10 MINUTES
     Route: 042
     Dates: start: 20060531

REACTIONS (3)
  - FLUSHING [None]
  - INFUSION RELATED REACTION [None]
  - PRURITUS [None]
